FAERS Safety Report 6310140-8 (Version None)
Quarter: 2009Q3

REPORT INFORMATION
  Report Type: 
  Country: None (occurrence: None)
  Receive Date: 20090814
  Receipt Date: 20090717
  Transmission Date: 20100115
  Serious: No
  Sender: FDA-Public Use
  Company Number: US-BAYER-200912502BCC

PATIENT
  Age: 56 Year
  Sex: Female
  Weight: 136 kg

DRUGS (5)
  1. ALEVE [Suspect]
     Indication: ARTHRALGIA
     Dosage: TOTAL DAILY DOSE: 440 MG  UNIT DOSE: 220 MG
     Route: 048
     Dates: start: 20090716
  2. LISINOPRIL [Concomitant]
  3. AMARYL [Concomitant]
  4. LEVOTHYROXINE SODIUM [Concomitant]
  5. METFORMIN HCL [Concomitant]

REACTIONS (1)
  - ARTHRALGIA [None]
